FAERS Safety Report 4299084-3 (Version None)
Quarter: 2004Q1

REPORT INFORMATION
  Report Type: 
  Country: None (occurrence: None)
  Receive Date: 20040217
  Receipt Date: 20040206
  Transmission Date: 20041129
  Serious: Yes (Hospitalization)
  Sender: FDA-Public Use
  Company Number: 2004197793JP

PATIENT
  Age: 51 Year
  Sex: Female

DRUGS (11)
  1. CAMPTOSAR [Suspect]
     Indication: COLORECTAL CANCER
     Dosage: SEE IMAGE, IV DRIP
     Route: 041
     Dates: start: 20030423, end: 20030423
  2. CAMPTOSAR [Suspect]
     Indication: COLORECTAL CANCER
     Dosage: SEE IMAGE, IV DRIP
     Route: 041
     Dates: start: 20030815, end: 20030815
  3. CAMPTOSAR [Suspect]
     Indication: COLORECTAL CANCER
     Dosage: SEE IMAGE, IV DRIP
     Route: 041
     Dates: start: 20030826, end: 20031001
  4. PREDNISOLONE [Suspect]
     Indication: METASTASES TO CENTRAL NERVOUS SYSTEM
     Dosage: 40 MG, IV DRIP
     Route: 041
     Dates: start: 20030926
  5. MORPHINE [Concomitant]
  6. FERRUM [Concomitant]
  7. GASTER [Concomitant]
  8. SELBEX (TEPRENONE) [Concomitant]
  9. PANTOL [Concomitant]
  10. HYOSCINE HBR HYT [Concomitant]
  11. FLUCALIQ N. 3 [Concomitant]

REACTIONS (2)
  - DEPERSONALISATION [None]
  - DIPLOPIA [None]
